FAERS Safety Report 7715484-0 (Version None)
Quarter: 2011Q3

REPORT INFORMATION
  Report Type: 
  Country: None (occurrence: None)
  Receive Date: 20110810
  Receipt Date: 20110706
  Transmission Date: 20111222
  Serious: No
  Sender: FDA-Public Use
  Company Number: 1000021981

PATIENT
  Sex: Female

DRUGS (12)
  1. PREVACID (LANSOPRAZOLE) (LANSOPRAZOLE) [Concomitant]
  2. LAMICTAL [Concomitant]
  3. ELAVIL (AMITRIPTYLINE) (AMITRIPTYLINE) [Concomitant]
  4. MESTINON (PYRIDOSTIGMINE BROMIDE) (PYRIDOSTIGMINE BROMIDE) [Concomitant]
  5. SAVELLA [Suspect]
     Indication: FIBROMYALGIA
     Dosage: SEE IMAGE
     Route: 048
     Dates: start: 20110301, end: 20110101
  6. SAVELLA [Suspect]
     Indication: FIBROMYALGIA
     Dosage: SEE IMAGE
     Route: 048
     Dates: start: 20110101, end: 20110101
  7. SAVELLA [Suspect]
     Indication: FIBROMYALGIA
     Dosage: SEE IMAGE
     Route: 048
     Dates: start: 20110101
  8. SAVELLA [Suspect]
     Indication: FIBROMYALGIA
     Dosage: SEE IMAGE
     Route: 048
     Dates: start: 20110101, end: 20110101
  9. SINGULAIR (MONTELUKAST) (MONTELUKAST) [Concomitant]
  10. OXYCODONE HCL [Concomitant]
  11. XANAX [Concomitant]
  12. REMERON [Concomitant]

REACTIONS (1)
  - DRUG SCREEN FALSE POSITIVE [None]
